FAERS Safety Report 7448956-7 (Version None)
Quarter: 2011Q2

REPORT INFORMATION
  Report Type: 
  Country: None (occurrence: None)
  Receive Date: 20110429
  Receipt Date: 20081010
  Transmission Date: 20111010
  Serious: Yes (Hospitalization, Other)
  Sender: FDA-Public Use
  Company Number: DE-GENENTECH-317614

PATIENT
  Age: 80 Year
  Sex: Female

DRUGS (3)
  1. AVASTIN [Suspect]
     Indication: PRODUCT USED FOR UNKNOWN INDICATION
     Route: 031
  2. LUCENTIS [Suspect]
     Indication: MACULAR DEGENERATION
     Dosage: UNK
     Route: 031
     Dates: start: 20080303
  3. MACUGEN [Concomitant]
     Indication: PRODUCT USED FOR UNKNOWN INDICATION

REACTIONS (21)
  - EYE PRURITUS [None]
  - EYE HAEMORRHAGE [None]
  - ASTHENIA [None]
  - HYPERTENSION [None]
  - EYE PAIN [None]
  - VISUAL ACUITY REDUCED [None]
  - BLOOD DISORDER [None]
  - FATIGUE [None]
  - BONE PAIN [None]
  - BLOOD PRESSURE FLUCTUATION [None]
  - EYE IRRITATION [None]
  - INFECTION [None]
  - RETINAL OEDEMA [None]
  - WHITE BLOOD CELL COUNT DECREASED [None]
  - HEADACHE [None]
  - EYE SWELLING [None]
  - OCULAR HYPERAEMIA [None]
  - CATARACT [None]
  - CORNEAL SCAR [None]
  - PLATELET COUNT INCREASED [None]
  - FOREIGN BODY SENSATION IN EYES [None]
